FAERS Safety Report 8390607-1 (Version None)
Quarter: 2012Q2

REPORT INFORMATION
  Report Type: 
  Country: None (occurrence: None)
  Receive Date: 20120529
  Receipt Date: 20120522
  Transmission Date: 20120825
  Serious: Yes (Hospitalization)
  Sender: FDA-Public Use
  Company Number: US-BAYER-201029656NA

PATIENT
  Age: 29 Year
  Sex: Female
  Weight: 88.435 kg

DRUGS (4)
  1. YASMIN [Suspect]
     Dosage: UNK
     Route: 048
     Dates: start: 20080612
  2. YASMIN [Suspect]
     Route: 048
     Dates: start: 20071226, end: 20080501
  3. YAZ [Suspect]
     Route: 048
     Dates: start: 20080623, end: 20080901
  4. YAZ [Suspect]

REACTIONS (4)
  - INJURY [None]
  - EMOTIONAL DISTRESS [None]
  - PULMONARY EMBOLISM [None]
  - CHEST PAIN [None]
